FAERS Safety Report 14352058 (Version 1)
Quarter: 2018Q1

REPORT INFORMATION
  Report Type: Spontaneous
  Country: ES (occurrence: ES)
  Receive Date: 20180104
  Receipt Date: 20180104
  Transmission Date: 20180509
  Serious: Yes (Hospitalization, Other)
  Sender: FDA-Public Use
  Company Number: ES-SHIRE-ES201735467

PATIENT

DRUGS (5)
  1. MERCAPTOPURINA (405A) [Concomitant]
     Active Substance: MERCAPTOPURINE
     Indication: ACUTE LYMPHOCYTIC LEUKAEMIA
     Dosage: 50 MG L-X-V Y 100 MG M-J-S-D
     Route: 048
     Dates: start: 20171109
  2. METOTREXATO (418A) [Concomitant]
     Active Substance: METHOTREXATE
     Indication: ACUTE LYMPHOCYTIC LEUKAEMIA
     Route: 048
     Dates: start: 20171109
  3. OMEPRAZOL (2141A) [Concomitant]
     Active Substance: OMEPRAZOLE
     Indication: PROPHYLAXIS
     Route: 048
  4. ONCASPAR [Suspect]
     Active Substance: PEGASPARGASE
     Indication: ACUTE LYMPHOCYTIC LEUKAEMIA
     Dosage: 1000 UI/M? ; IN TOTAL
     Route: 030
     Dates: start: 20171109, end: 20171109
  5. SEPTRIN 80 MG/400 MG COMPRIMIDOS , 20 COMPRIMIDOS [Concomitant]
     Indication: PROPHYLAXIS
     Dosage: 80 MG/ VIERNES Y 40 MG/SABADO
     Route: 048

REACTIONS (1)
  - Pancreatitis acute [Recovering/Resolving]

NARRATIVE: CASE EVENT DATE: 20171121
